FAERS Safety Report 9269308 (Version 9)
Quarter: 2022Q4

REPORT INFORMATION
  Report Type: Spontaneous
  Country: US (occurrence: US)
  Receive Date: 20130503
  Receipt Date: 20221202
  Transmission Date: 20230112
  Serious: Yes (Hospitalization)
  Sender: FDA-Public Use
  Company Number: US-PFIZER INC-2013136070

PATIENT
  Age: 59 Year
  Sex: Female
  Weight: 41 kg

DRUGS (20)
  1. SUTENT [Suspect]
     Active Substance: SUNITINIB MALATE
     Indication: Gastrointestinal stromal tumour
     Dosage: 25 MG, 1X/DAY
     Route: 048
     Dates: start: 2009
  2. SUTENT [Suspect]
     Active Substance: SUNITINIB MALATE
     Indication: Small intestine carcinoma
     Dosage: 25 MG, CYCLIC (2 WEEKS ON/2 WEEKS OFF)
     Route: 048
     Dates: start: 2010
  3. SUTENT [Suspect]
     Active Substance: SUNITINIB MALATE
     Dosage: 25 MG, CYCLIC (STAYS ON THE THERAPY FOR FOUR WEEKS AND THEN STOPS THE THERAPY FOR 3 WEEKS)
     Route: 048
     Dates: start: 201206
  4. SUTENT [Suspect]
     Active Substance: SUNITINIB MALATE
     Dosage: 50 MG,
     Route: 048
  5. SUTENT [Suspect]
     Active Substance: SUNITINIB MALATE
     Dosage: 25 MG, CYCLIC (ONE CAPSULE DAILY FOR 14 DAYS AND THEN 2 WEEKS OFF)
     Route: 048
     Dates: start: 2012
  6. SUTENT [Suspect]
     Active Substance: SUNITINIB MALATE
     Dosage: 25 MG, 1X/DAY
  7. SUTENT [Suspect]
     Active Substance: SUNITINIB MALATE
     Dosage: UNK
  8. ZYRTEC [Concomitant]
     Active Substance: CETIRIZINE HYDROCHLORIDE
     Indication: Hypersensitivity
     Dosage: 10 MG, ONCE A DAY (EACH DAY)
     Route: 048
     Dates: start: 1995
  9. ZYRTEC [Concomitant]
     Active Substance: CETIRIZINE HYDROCHLORIDE
     Indication: Sinusitis
     Dosage: UNK
     Dates: start: 1989
  10. MINERALS\VITAMINS [Concomitant]
     Active Substance: MINERALS\VITAMINS
     Indication: Nutritional supplementation
     Dosage: 1 DF, DAILY
     Dates: start: 1982
  11. MINERALS\VITAMINS [Concomitant]
     Active Substance: MINERALS\VITAMINS
     Indication: Supplementation therapy
     Dosage: 2 DF, 1X/DAY
     Dates: start: 2012
  12. STOOL SOFTENER (DOCUSATE) [Concomitant]
     Active Substance: DOCUSATE
     Indication: Constipation
     Dosage: 100 MG, 1X/DAY (3 SOFT GELS BEFORE BEDTIME; 3 SOFT GELS PER DAY)
     Route: 048
     Dates: start: 2011
  13. PROBIOTICS NOS [Concomitant]
     Active Substance: PROBIOTICS NOS
     Indication: Dyspepsia
     Dosage: 1 DF, DAILY (10 PROBIOTIC STRAINS)
     Route: 048
     Dates: start: 2012
  14. PROBIOTICS NOS [Concomitant]
     Active Substance: PROBIOTICS NOS
     Dosage: 1 DF, DAILY (10 PROBIOTIC STRAINS)
     Route: 048
     Dates: start: 2013
  15. PROBIOTICS NOS [Concomitant]
     Active Substance: PROBIOTICS NOS
     Dosage: UNK, 1X/DAY
  16. VITAMIN D3 [Concomitant]
     Active Substance: CHOLECALCIFEROL
     Indication: Supplementation therapy
     Dosage: 1000 IU, DAILY
     Dates: start: 2013
  17. VITAMIN D3 [Concomitant]
     Active Substance: CHOLECALCIFEROL
     Dosage: 1 DF, ALTERNATE DAY (ONE PILL EVERY OTHER DAY BY MOUTH)
     Route: 048
  18. VITAMIN B12 [Concomitant]
     Active Substance: CYANOCOBALAMIN
     Indication: Metabolic disorder
     Dosage: 500 MG, DAILY
     Dates: start: 2015
  19. PAPAYA ENZYME [Concomitant]
     Indication: Nutritional supplementation
     Dosage: UNK, 1X/DAY (1 OR 2 TABLETS PER DAY)
  20. PAPAYA ENZYME [Concomitant]
     Indication: Supplementation therapy
     Dosage: 2 DF, DAILY (20MG: PAPAYA; 40MG: PAPAIN)
     Dates: start: 2017

REACTIONS (17)
  - Vomiting [Recovered/Resolved]
  - Product dose omission issue [Not Recovered/Not Resolved]
  - Dyspepsia [Recovered/Resolved]
  - Constipation [Recovered/Resolved]
  - Amnesia [Not Recovered/Not Resolved]
  - Ageusia [Not Recovered/Not Resolved]
  - Nausea [Unknown]
  - Abdominal discomfort [Unknown]
  - Yellow skin [Unknown]
  - Dry skin [Unknown]
  - Blister [Not Recovered/Not Resolved]
  - Pain of skin [Unknown]
  - Oral herpes [Unknown]
  - Alopecia [Unknown]
  - Insomnia [Recovered/Resolved]
  - Fatigue [Not Recovered/Not Resolved]
  - Oral mucosal blistering [Not Recovered/Not Resolved]

NARRATIVE: CASE EVENT DATE: 20090101
